FAERS Safety Report 5083515-5 (Version None)
Quarter: 2006Q3

REPORT INFORMATION
  Report Type: 
  Country: None (occurrence: None)
  Receive Date: 20060720
  Receipt Date: 20050701
  Transmission Date: 20061208
  Serious: Yes (Hospitalization, Other)
  Sender: FDA-Public Use
  Company Number: 2005049856

PATIENT
  Age: 47 Year
  Sex: Female

DRUGS (6)
  1. CELEBREX [Suspect]
     Indication: ARTHRALGIA
     Dosage: 200 MG (1 IN 1 D), ORAL
     Route: 048
     Dates: start: 20040426
  2. MOBIC [Suspect]
     Indication: PAIN
     Dosage: 15 MG (1 IN 1 D), ORAL
     Route: 048
     Dates: start: 20040209, end: 20041026
  3. VICODIN [Suspect]
     Indication: PAIN
     Dosage: ORAL
     Route: 048
     Dates: start: 20020901
  4. RHINOCORT AQUA (BUDESONIDE) [Concomitant]
  5. BACLOFEN [Concomitant]
  6. ALLEGRA [Concomitant]

REACTIONS (6)
  - BACK PAIN [None]
  - FALL [None]
  - FATIGUE [None]
  - GASTROINTESTINAL HAEMORRHAGE [None]
  - GASTROOESOPHAGEAL REFLUX DISEASE [None]
  - OVERDOSE [None]
